FAERS Safety Report 5889118-4 (Version None)
Quarter: 2008Q3

REPORT INFORMATION
  Report Type: 
  Country: None (occurrence: None)
  Receive Date: 20080910
  Receipt Date: 20080829
  Transmission Date: 20090109
  Serious: Yes (Other)
  Sender: FDA-Public Use
  Company Number: AEITA200800209

PATIENT
  Age: 23 Year

DRUGS (4)
  1. IMMUNE GLOBULIN INTRAVENOUS (HUMAN) [Suspect]
     Indication: IMMUNODEFICIENCY COMMON VARIABLE
     Dosage: IV
     Route: 042
  2. VIVAGLOBIN [Suspect]
     Indication: IMMUNODEFICIENCY COMMON VARIABLE
  3. CORTICOSTEROID NOS [Concomitant]
  4. ANTIHISTAMINES [Concomitant]

REACTIONS (3)
  - ANGIOEDEMA [None]
  - CHILLS [None]
  - HYPOTENSION [None]
